FAERS Safety Report 6216933-X (Version None)
Quarter: 2009Q2

REPORT INFORMATION
  Report Type: 
  Country: None (occurrence: None)
  Receive Date: 20090604
  Receipt Date: 20090521
  Transmission Date: 20091009
  Serious: Yes (Hospitalization)
  Sender: FDA-Public Use
  Company Number: 2008US001186

PATIENT
  Age: 40 Year
  Sex: Male
  Weight: 77.1 kg

DRUGS (2)
  1. PROTOPIC [Suspect]
     Indication: ECZEMA
     Dates: start: 20051101, end: 20060221
  2. ZYRTEC (CERTIRIZINE HYDROCHOLORIDE) [Concomitant]

REACTIONS (4)
  - BONE MARROW TRANSPLANT [None]
  - CHRONIC OBSTRUCTIVE PULMONARY DISEASE [None]
  - HODGKIN'S DISEASE STAGE IV [None]
  - RASH [None]
